FAERS Safety Report 8220242-7 (Version None)
Quarter: 2012Q1

REPORT INFORMATION
  Report Type: 
  Country: None (occurrence: None)
  Receive Date: 20120320
  Receipt Date: 20120308
  Transmission Date: 20120608
  Serious: Yes (Hospitalization)
  Sender: FDA-Public Use
  Company Number: US-BAYER-2011-045963

PATIENT
  Age: 57 Year
  Sex: Female
  Weight: 56 kg

DRUGS (10)
  1. CALCIUM CARBONATE [Concomitant]
     Indication: MEDICAL DIET
     Dosage: UNK
     Dates: start: 20060915, end: 20061005
  2. YAZ [Suspect]
     Indication: MENOPAUSAL SYMPTOMS
     Dosage: UNK
     Dates: start: 20060512, end: 20061005
  3. ASCORBIC ACID [Concomitant]
     Indication: MEDICAL DIET
     Dosage: UNK
     Route: 048
     Dates: start: 20060915, end: 20061005
  4. MULTI-VITAMIN [Concomitant]
     Indication: MEDICAL DIET
     Dosage: UNK
     Dates: start: 20060915, end: 20061005
  5. YASMIN [Suspect]
     Indication: MENOPAUSAL SYMPTOMS
     Dosage: UNK
     Dates: start: 20030501, end: 20060127
  6. GLUCOSAMINE [Concomitant]
     Indication: MEDICAL DIET
     Dosage: UNK
     Dates: start: 20060915, end: 20061005
  7. LEVOTHYROXINE SODIUM [Concomitant]
     Indication: THYROID DISORDER
     Dosage: UNK
     Route: 048
     Dates: start: 20050101
  8. LEVOXYL [Concomitant]
     Indication: THYROID DISORDER
     Dosage: 137 ?G, QD
     Route: 048
     Dates: start: 20060101
  9. LUNESTA [Concomitant]
     Indication: SLEEP DISORDER THERAPY
     Dosage: UNK
     Route: 048
     Dates: start: 20060101
  10. NSAID'S [Concomitant]
     Dosage: UNK UNK, PRN
     Route: 048
     Dates: start: 20010101, end: 20100101

REACTIONS (16)
  - HYPOAESTHESIA [None]
  - PARAESTHESIA [None]
  - CEREBROVASCULAR ACCIDENT [None]
  - INJURY [None]
  - POST STROKE DEPRESSION [None]
  - INSOMNIA [None]
  - BALANCE DISORDER [None]
  - PAIN [None]
  - VISUAL FIELD DEFECT [None]
  - HEADACHE [None]
  - ANXIETY [None]
  - EMOTIONAL DISTRESS [None]
  - COORDINATION ABNORMAL [None]
  - ANHEDONIA [None]
  - CEREBRAL ARTERY OCCLUSION [None]
  - MUSCULAR WEAKNESS [None]
